FAERS Safety Report 17201896 (Version 1)
Quarter: 2020Q1

REPORT INFORMATION
  Report Type: Spontaneous
  Country: US (occurrence: US)
  Receive Date: 20191225
  Receipt Date: 20191225
  Transmission Date: 20200409
  Serious: Yes (Other)
  Sender: FDA-Public Use
  Company Number: None

PATIENT
  Age: 13 Year
  Sex: Female
  Weight: 38.7 kg

DRUGS (1)
  1. POSACONAZOLE TABLET [Suspect]
     Active Substance: POSACONAZOLE
     Indication: FUNGAL INFECTION
     Dosage: ?          QUANTITY:4 CAPSULE(S);?
     Route: 048
     Dates: start: 20190704, end: 20190922

REACTIONS (2)
  - Bowel movement irregularity [None]
  - Abdominal pain [None]

NARRATIVE: CASE EVENT DATE: 20190823
